FAERS Safety Report 5655039-5 (Version None)
Quarter: 2008Q1

REPORT INFORMATION
  Report Type: 
  Country: None (occurrence: None)
  Receive Date: 20080307
  Receipt Date: 20071101
  Transmission Date: 20080703
  Serious: No
  Sender: FDA-Public Use
  Company Number: A0690999A

PATIENT
  Sex: Male

DRUGS (2)
  1. REQUIP [Suspect]
     Indication: PERIODIC LIMB MOVEMENT DISORDER
     Dosage: 1MG PER DAY
     Route: 048
  2. KLONOPIN [Suspect]
     Dosage: .05MG PER DAY

REACTIONS (3)
  - DYSKINESIA [None]
  - IMPULSIVE BEHAVIOUR [None]
  - SOMNAMBULISM [None]
